FAERS Safety Report 7037672-1 (Version None)
Quarter: 2010Q4

REPORT INFORMATION
  Report Type: 
  Country: None (occurrence: None)
  Receive Date: 20101011
  Receipt Date: 20101001
  Transmission Date: 20110411
  Serious: Yes (Hospitalization)
  Sender: FDA-Public Use
  Company Number: US-ASTRAZENECA-2010SE46609

PATIENT
  Age: 52 Year
  Sex: Female

DRUGS (7)
  1. PRILOSEC OTC [Suspect]
     Indication: GASTROOESOPHAGEAL REFLUX DISEASE
     Dosage: DAILY
     Route: 048
     Dates: start: 20100928, end: 20100928
  2. PRILOSEC OTC [Suspect]
     Route: 048
  3. METFORMIN [Concomitant]
  4. LANTUS [Concomitant]
  5. ENALAPRIL MALEATE [Concomitant]
  6. LIPITOR [Concomitant]
  7. KLONOPIN [Concomitant]

REACTIONS (9)
  - CHEST DISCOMFORT [None]
  - CHEST PAIN [None]
  - DYSPNOEA [None]
  - HEART RATE INCREASED [None]
  - HYPERHIDROSIS [None]
  - MUSCULOSKELETAL PAIN [None]
  - MYOCARDIAL INFARCTION [None]
  - OEDEMA PERIPHERAL [None]
  - TREMOR [None]
